FAERS Safety Report 4647562-7 (Version None)
Quarter: 2005Q2

REPORT INFORMATION
  Report Type: 
  Country: None (occurrence: None)
  Receive Date: 20050428
  Receipt Date: 20041013
  Transmission Date: 20051028
  Serious: Yes (Other)
  Sender: FDA-Public Use
  Company Number: DE-MERCK-0410DEU00694

PATIENT
  Age: 81 Year
  Sex: Female
  Weight: 78 kg

DRUGS (12)
  1. VIOXX [Suspect]
     Indication: POLYARTHRITIS
     Route: 048
     Dates: start: 20000426, end: 20011125
  2. VIOXX [Suspect]
     Route: 048
     Dates: start: 20011126, end: 20041001
  3. VIOXX [Suspect]
     Indication: OSTEOARTHRITIS
     Route: 048
     Dates: start: 20000426, end: 20011125
  4. VIOXX [Suspect]
     Route: 048
     Dates: start: 20011126, end: 20041001
  5. ASPIRIN [Concomitant]
     Route: 065
  6. CALCIUM DOBESILATE [Concomitant]
     Route: 065
  7. OXAZEPAM [Concomitant]
     Route: 065
  8. VITAMIN E ACETATE D-FORM [Concomitant]
     Route: 065
  9. MAGNESIUM (UNSPECIFIED) [Concomitant]
     Route: 065
  10. NIFEDIPINE [Concomitant]
     Route: 065
  11. CALCIUM CITRATE AND CHOLECALCIFEROL [Concomitant]
     Route: 065
  12. NITROGLYCERIN [Concomitant]
     Route: 065

REACTIONS (29)
  - ANGINA PECTORIS [None]
  - ANXIETY [None]
  - APHONIA [None]
  - ARTHRALGIA [None]
  - ATRIAL FIBRILLATION [None]
  - BALANCE DISORDER [None]
  - BLINDNESS UNILATERAL [None]
  - CEREBROVASCULAR ACCIDENT [None]
  - CERVICAL SPINAL STENOSIS [None]
  - CHEST DISCOMFORT [None]
  - CORONARY ARTERY DISEASE [None]
  - DIZZINESS [None]
  - DYSPNOEA [None]
  - FLUID RETENTION [None]
  - HEADACHE [None]
  - HYPERHIDROSIS [None]
  - HYPERTENSION [None]
  - HYPOACUSIS [None]
  - INSOMNIA [None]
  - MUSCLE SPASMS [None]
  - OEDEMA [None]
  - OSTEOCHONDROSIS [None]
  - PAIN IN EXTREMITY [None]
  - PALPITATIONS [None]
  - RETINAL VASCULAR OCCLUSION [None]
  - SYNCOPE [None]
  - VASCULAR ENCEPHALOPATHY [None]
  - VERTIGO [None]
  - VISUAL DISTURBANCE [None]
